FAERS Safety Report 21880317 (Version 2)
Quarter: 2023Q2

REPORT INFORMATION
  Report Type: Report from Study
  Country: US (occurrence: US)
  Receive Date: 20230118
  Receipt Date: 20230405
  Transmission Date: 20230721
  Serious: Yes (Death, Other)
  Sender: FDA-Public Use
  Company Number: US-TAKEDA-2023TUS005781

PATIENT
  Sex: Male

DRUGS (1)
  1. HUMAN IMMUNOGLOBULIN G [Suspect]
     Active Substance: HUMAN IMMUNOGLOBULIN G
     Indication: Product used for unknown indication
     Dosage: UNK
     Route: 042

REACTIONS (8)
  - Death [Fatal]
  - Immunodeficiency [Unknown]
  - Diabetes mellitus [Unknown]
  - Liver disorder [Unknown]
  - Organ failure [Unknown]
  - Renal disorder [Unknown]
  - Ammonia increased [Unknown]
  - Blood cholesterol increased [Unknown]
